FAERS Safety Report 9279020 (Version 4)
Quarter: 2014Q1

REPORT INFORMATION
  Report Type: Spontaneous
  Country: US (occurrence: US)
  Receive Date: 20130508
  Receipt Date: 20140213
  Transmission Date: 20141002
  Serious: Yes (Other)
  Sender: FDA-Public Use
  Company Number: US-PFIZER INC-2013142037

PATIENT
  Age: 66 Year
  Sex: Female
  Weight: 123 kg

DRUGS (10)
  1. LYRICA [Suspect]
     Indication: FIBROMYALGIA
     Dosage: 50 MG, 3X/DAY
     Route: 048
  2. LOTREL [Concomitant]
     Indication: HYPERTENSION
     Dosage: 10/40 MG, UNK
  3. PROTONIX [Concomitant]
     Indication: ABDOMINAL DISCOMFORT
     Dosage: 40 MG, UNK
  4. SINGULAIR [Concomitant]
     Indication: ASTHMA
     Dosage: UNK
  5. XANAX [Concomitant]
     Indication: ANXIETY
     Dosage: UNK
  6. PAXIL [Concomitant]
     Indication: DEPRESSION
     Dosage: UNK
  7. MS-CONTIN [Concomitant]
     Dosage: 15 MG, 3X/DAY (EVERY 8 HOUR)
  8. MSIR [Concomitant]
     Dosage: 15 MG, UNK
  9. CALCIUM [Concomitant]
     Indication: BONE DISORDER
     Dosage: UNK
  10. CENTRUM SILVER [Concomitant]
     Indication: VITAMIN SUPPLEMENTATION
     Dosage: UNK

REACTIONS (8)
  - Non-Hodgkin^s lymphoma stage III [Unknown]
  - Cancer pain [Unknown]
  - Neoplasm malignant [Unknown]
  - Abasia [Unknown]
  - Hypoaesthesia [Unknown]
  - Malaise [Unknown]
  - Paraesthesia [Unknown]
  - Pain [Unknown]
